FAERS Safety Report 5508078-9 (Version None)
Quarter: 2007Q4

REPORT INFORMATION
  Report Type: 
  Country: None (occurrence: None)
  Receive Date: 20071031
  Receipt Date: 20070713
  Transmission Date: 20080405
  Serious: No
  Sender: FDA-Public Use
  Company Number: 200610104BWH

PATIENT
  Sex: Male

DRUGS (5)
  1. SORAFENIB [Suspect]
     Indication: METASTATIC RENAL CELL CARCINOMA
     Dosage: 400 MG, BID, ORAL
     Route: 048
     Dates: start: 20051101
  2. ALLEGRA [Concomitant]
  3. ASACOL [Concomitant]
  4. HYDROCODONE BITARTRATE [Concomitant]
  5. TIME RELEASE MORPHINE PRODUCT [Concomitant]

REACTIONS (6)
  - BLOOD PRESSURE INCREASED [None]
  - FATIGUE [None]
  - FLUSHING [None]
  - NAUSEA [None]
  - RASH [None]
  - SKIN EXFOLIATION [None]
